FAERS Safety Report 16984793 (Version 4)
Quarter: 2019Q4

REPORT INFORMATION
  Report Type: Spontaneous
  Country: US (occurrence: US)
  Receive Date: 20191101
  Receipt Date: 20191128
  Transmission Date: 20200122
  Serious: No
  Sender: FDA-Public Use
  Company Number: US-UNITED THERAPEUTICS-UNT-2019-018113

PATIENT
  Age: 65 Year
  Sex: Female
  Weight: 81.63 kg

DRUGS (7)
  1. TYVASO [Suspect]
     Active Substance: TREPROSTINIL
     Dosage: 60-120 ?G, QID
     Dates: start: 2019
  2. ADCIRCA [Concomitant]
     Active Substance: TADALAFIL
     Indication: PULMONARY ARTERIAL HYPERTENSION
     Dosage: UNK
     Route: 065
  3. TYVASO [Suspect]
     Active Substance: TREPROSTINIL
     Dosage: 54 ?G, UNK
     Dates: start: 20191101
  4. TYVASO [Suspect]
     Active Substance: TREPROSTINIL
     Dosage: UNK
  5. LETAIRIS [Concomitant]
     Active Substance: AMBRISENTAN
     Indication: PRODUCT USED FOR UNKNOWN INDICATION
     Dosage: UNK
     Route: 065
  6. TYVASO [Suspect]
     Active Substance: TREPROSTINIL
     Indication: PULMONARY ARTERIAL HYPERTENSION
     Dosage: 18-54 ?G, QID
     Dates: start: 20191017
  7. REMODULIN [Suspect]
     Active Substance: TREPROSTINIL
     Indication: PULMONARY ARTERIAL HYPERTENSION
     Dosage: 0.010 ?G/KG, CONTINUING
     Route: 058
     Dates: start: 20190218

REACTIONS (8)
  - Vision blurred [Unknown]
  - Cough [Unknown]
  - Flushing [Unknown]
  - Off label use [Unknown]
  - Blood pressure decreased [Recovered/Resolved]
  - Oropharyngeal pain [Unknown]
  - Dizziness [Unknown]
  - Dysphonia [Unknown]

NARRATIVE: CASE EVENT DATE: 2019
